FAERS Safety Report 24445127 (Version 3)
Quarter: 2025Q3

REPORT INFORMATION
  Report Type: Report from Study
  Country: IN (occurrence: IN)
  Receive Date: 20241016
  Receipt Date: 20250725
  Transmission Date: 20251021
  Serious: Yes (Other)
  Sender: NOVARTIS
  Company Number: IN-002147023-NVSC2021IN058457

PATIENT
  Sex: Female
  Weight: 59 kg

DRUGS (6)
  1. DABRAFENIB [Suspect]
     Active Substance: DABRAFENIB
     Indication: Non-small cell lung cancer
     Dosage: 150 MG, BID (2 CAPSULES)
     Route: 048
     Dates: start: 20201213
  2. DABRAFENIB [Suspect]
     Active Substance: DABRAFENIB
     Indication: BRAF gene mutation
     Dosage: 150 MG, QD
     Route: 048
     Dates: start: 20201223
  3. DABRAFENIB [Suspect]
     Active Substance: DABRAFENIB
     Dosage: 150 MG, BID
     Route: 048
  4. TRAMETINIB [Suspect]
     Active Substance: TRAMETINIB
     Indication: Non-small cell lung cancer
     Dosage: 2 MG, QD
     Route: 048
     Dates: start: 20201223
  5. TRAMETINIB [Suspect]
     Active Substance: TRAMETINIB
     Indication: BRAF gene mutation
     Dosage: 1 MG, QD
     Route: 048
  6. TRAMETINIB [Suspect]
     Active Substance: TRAMETINIB
     Dosage: 2 MG, QD
     Route: 048

REACTIONS (22)
  - Metastases to lymph nodes [Recovered/Resolved]
  - Mental impairment [Unknown]
  - Lung neoplasm malignant [Unknown]
  - Compression fracture [Unknown]
  - Paraesthesia [Recovered/Resolved]
  - Vomiting [Recovered/Resolved]
  - Diarrhoea [Recovered/Resolved]
  - Nausea [Recovered/Resolved]
  - Discomfort [Unknown]
  - Nausea [Unknown]
  - Haemoglobin abnormal [Unknown]
  - Vomiting [Unknown]
  - Gastrointestinal disorder [Unknown]
  - Peripheral swelling [Unknown]
  - Dizziness [Unknown]
  - Dyspnoea exertional [Unknown]
  - Chest pain [Unknown]
  - Pleural effusion [Unknown]
  - Mouth ulceration [Unknown]
  - Therapy partial responder [Unknown]
  - Vitamin D decreased [Unknown]
  - Cough [Unknown]
